FAERS Safety Report 18898139 (Version 2)
Quarter: 2021Q1

REPORT INFORMATION
  Report Type: Report from Study
  Country: US (occurrence: US)
  Receive Date: 20210216
  Receipt Date: 20210317
  Transmission Date: 20210420
  Serious: Yes (Hospitalization)
  Sender: FDA-Public Use
  Company Number: US-GILEAD-2021-0517238

PATIENT
  Age: 61 Year
  Sex: Female

DRUGS (13)
  1. ALENDRONATE [Concomitant]
     Active Substance: ALENDRONATE SODIUM
  2. ETHACRYNIC ACID. [Concomitant]
     Active Substance: ETHACRYNIC ACID
  3. AMBRISENTAN [Suspect]
     Active Substance: AMBRISENTAN
     Indication: PULMONARY ARTERIAL HYPERTENSION
     Dosage: 10 MG, QD
     Route: 065
     Dates: start: 20180116
  4. VIT D [Concomitant]
     Active Substance: VITAMIN D NOS
  5. NIFEDIPINE. [Concomitant]
     Active Substance: NIFEDIPINE
  6. SPIRONOLACTON [Concomitant]
     Active Substance: SPIRONOLACTONE
  7. AZATHIOPRINE. [Concomitant]
     Active Substance: AZATHIOPRINE
  8. REVATIO [Suspect]
     Active Substance: SILDENAFIL CITRATE
     Indication: PULMONARY ARTERIAL HYPERTENSION
     Dosage: 20 MG, TID
     Route: 065
     Dates: start: 20180116
  9. ANASTROZOLE. [Concomitant]
     Active Substance: ANASTROZOLE
  10. WARFARIN [Concomitant]
     Active Substance: WARFARIN
  11. SILDENAFIL. [Concomitant]
     Active Substance: SILDENAFIL
  12. LEVOTHYROXINE. [Concomitant]
     Active Substance: LEVOTHYROXINE
  13. URSODIOL. [Concomitant]
     Active Substance: URSODIOL

REACTIONS (2)
  - Product dose omission issue [Not Recovered/Not Resolved]
  - Cardiac valve disease [Recovered/Resolved]
